FAERS Safety Report 10098959 (Version 2)
Quarter: 2014Q2

REPORT INFORMATION
  Report Type: Report from Study
  Country: JP (occurrence: JP)
  Receive Date: 20140423
  Receipt Date: 20140423
  Transmission Date: 20141212
  Serious: Yes (Hospitalization)
  Sender: FDA-Public Use
  Company Number: JP-TAKEDA-TCI2012A05667

PATIENT
  Age: 77 Year
  Sex: Male
  Weight: 54.9 kg

DRUGS (10)
  1. ALOGLIPTIN [Suspect]
     Indication: TYPE 2 DIABETES MELLITUS
     Dosage: 25 MG, QD
     Route: 048
     Dates: start: 20120907, end: 20120917
  2. GLIMEPIRIDE [Suspect]
     Indication: TYPE 2 DIABETES MELLITUS
     Dosage: 1 MG, BID
     Route: 048
     Dates: end: 20120917
  3. GLUCOBAY [Suspect]
     Dosage: 100 MG, TID
     Route: 048
     Dates: end: 20120917
  4. PREMINENT [Concomitant]
     Dosage: 1 DF, QD
     Route: 048
  5. ALOSITOL [Concomitant]
     Dosage: 100 MG, BID
     Route: 048
  6. FAMOTIDINE [Concomitant]
     Dosage: 20 MG, BID
     Route: 048
  7. NORVASC [Concomitant]
     Dosage: 5 MG, QD
     Route: 048
  8. PLAVIX [Concomitant]
     Dosage: 75 MG, QD
     Route: 048
  9. BEZATOL [Concomitant]
     Dosage: 200 MG, BID
     Route: 048
  10. LIPITOR [Concomitant]
     Dosage: 10 MG, QD
     Route: 048

REACTIONS (1)
  - Hypoglycaemic unconsciousness [Recovered/Resolved]
